FAERS Safety Report 7236704-5 (Version None)
Quarter: 2011Q1

REPORT INFORMATION
  Report Type: 
  Country: None (occurrence: None)
  Receive Date: 20110120
  Receipt Date: 20110113
  Transmission Date: 20110831
  Serious: Yes (Hospitalization)
  Sender: FDA-Public Use
  Company Number: CHPA2011US01058

PATIENT
  Age: 60 Year
  Sex: Female

DRUGS (1)
  1. PREVACID 24 HR [Suspect]
     Indication: DYSPEPSIA
     Dosage: 15 MG, QD
     Route: 048
     Dates: start: 20101201, end: 20101201

REACTIONS (4)
  - PNEUMONIA [None]
  - OFF LABEL USE [None]
  - DYSPNOEA [None]
  - INSOMNIA [None]
